FAERS Safety Report 13987494 (Version 1)
Quarter: 2017Q3

REPORT INFORMATION
  Report Type: Spontaneous
  Country: US (occurrence: US)
  Receive Date: 20170919
  Receipt Date: 20170919
  Transmission Date: 20171128
  Serious: Yes (Other)
  Sender: FDA-Public Use
  Company Number: US-PFIZER INC-2017401293

PATIENT
  Age: 45 Year
  Sex: Female
  Weight: 75.75 kg

DRUGS (1)
  1. DILANTIN [Suspect]
     Active Substance: PHENYTOIN
     Indication: SEIZURE
     Dosage: 1 DF, 2X/DAY
     Dates: end: 2009

REACTIONS (5)
  - Petit mal epilepsy [Not Recovered/Not Resolved]
  - Rash [Not Recovered/Not Resolved]
  - Hair growth abnormal [Not Recovered/Not Resolved]
  - Pollakiuria [Not Recovered/Not Resolved]
  - Eye swelling [Not Recovered/Not Resolved]
